FAERS Safety Report 22009331 (Version 1)
Quarter: 2023Q1

REPORT INFORMATION
  Report Type: Spontaneous
  Country: JP (occurrence: JP)
  Receive Date: 20230220
  Receipt Date: 20230220
  Transmission Date: 20230418
  Serious: Yes (Other)
  Sender: FDA-Public Use
  Company Number: JP-002147023-NVSJ2023JP003250

PATIENT

DRUGS (3)
  1. ILARIS [Suspect]
     Active Substance: CANAKINUMAB
     Indication: Familial mediterranean fever
     Dosage: UNK
     Route: 058
  2. ILARIS [Suspect]
     Active Substance: CANAKINUMAB
     Dosage: UNK
     Route: 058
  3. LEVOTHYROXINE [Concomitant]
     Active Substance: LEVOTHYROXINE
     Indication: Pyrexia
     Dosage: UNK
     Route: 065

REACTIONS (5)
  - Quadriplegia [Unknown]
  - Loss of personal independence in daily activities [Unknown]
  - Autoimmune thyroiditis [Unknown]
  - Concomitant disease aggravated [Unknown]
  - Systemic lupus erythematosus [Unknown]
